FAERS Safety Report 9653215 (Version 1)
Quarter: 2013Q4

REPORT INFORMATION
  Report Type: Report from Study
  Country: ES (occurrence: ES)
  Receive Date: 20131029
  Receipt Date: 20131029
  Transmission Date: 20140711
  Serious: Yes (Other)
  Sender: FDA-Public Use
  Company Number: ES-GLAXOSMITHKLINE-B0936525A

PATIENT
  Age: 53 Year
  Sex: Male

DRUGS (1)
  1. VOTRIENT [Suspect]
     Indication: NEPHROPATHY
     Dosage: 600MG PER DAY
     Route: 065
     Dates: start: 201212

REACTIONS (8)
  - Groin abscess [Unknown]
  - Hyperkalaemia [Unknown]
  - Palmar-plantar erythrodysaesthesia syndrome [Unknown]
  - Dysgeusia [Unknown]
  - Hypothyroidism [Unknown]
  - Weight decreased [Unknown]
  - Hypertension [Unknown]
  - Hair colour changes [Unknown]
